FAERS Safety Report 9385399 (Version 2)
Quarter: 2013Q4

REPORT INFORMATION
  Report Type: Spontaneous
  Country: US (occurrence: US)
  Receive Date: 20130705
  Receipt Date: 20131218
  Transmission Date: 20140711
  Serious: Yes (Hospitalization)
  Sender: FDA-Public Use
  Company Number: US-B.I. PHARMACEUTICALS,INC./RIDGEFIELD-2013-BI-18739BP

PATIENT
  Sex: Male
  Weight: 81.65 kg

DRUGS (7)
  1. PRADAXA [Suspect]
     Indication: ATRIAL FIBRILLATION
     Dosage: 300 MG
     Dates: start: 20110509, end: 20110901
  2. RAMIPRIL [Concomitant]
     Dosage: 20 MG
  3. FLOMAX [Concomitant]
     Dosage: 0.4 MG
  4. METOPROLOL [Concomitant]
     Dosage: 100 MG
  5. MULTIVITAMIN [Concomitant]
  6. SIMVASTATIN [Concomitant]
     Dosage: 40 MG
  7. OMEGA 3 [Concomitant]
     Dosage: 1000 MG

REACTIONS (2)
  - Upper gastrointestinal haemorrhage [Unknown]
  - Haemorrhagic anaemia [Unknown]
